FAERS Safety Report 8291562-5 (Version None)
Quarter: 2012Q2

REPORT INFORMATION
  Report Type: 
  Country: None (occurrence: None)
  Receive Date: 20120417
  Receipt Date: 20120405
  Transmission Date: 20120825
  Serious: Yes (Other)
  Sender: FDA-Public Use
  Company Number: US-ELI_LILLY_AND_COMPANY-US201204002684

PATIENT
  Sex: Male

DRUGS (2)
  1. HUMALOG [Suspect]
     Indication: DIABETES MELLITUS
     Dosage: 24 U, BID
  2. LANTUS [Concomitant]
     Dosage: UNK

REACTIONS (6)
  - LIMB OPERATION [None]
  - MENISCUS LESION [None]
  - GAIT DISTURBANCE [None]
  - JOINT SWELLING [None]
  - WEIGHT INCREASED [None]
  - BLOOD GLUCOSE INCREASED [None]
